FAERS Safety Report 17839965 (Version 1)
Quarter: 2020Q2

REPORT INFORMATION
  Report Type: Spontaneous
  Country: JP (occurrence: JP)
  Receive Date: 20200529
  Receipt Date: 20200529
  Transmission Date: 20200714
  Serious: Yes (Hospitalization)
  Sender: FDA-Public Use
  Company Number: JP-AMGEN-JPNSP2020083835

PATIENT
  Age: 7 Decade
  Sex: Female
  Weight: 53 kg

DRUGS (3)
  1. RANMARK [Suspect]
     Active Substance: DENOSUMAB
     Indication: METASTASES TO BONE
     Dosage: UNK
     Route: 065
  2. PAZOPANIB HYDROCHLORIDE [Suspect]
     Active Substance: PAZOPANIB HYDROCHLORIDE
     Dosage: 600MG/DAY
     Route: 048
  3. PAZOPANIB HYDROCHLORIDE [Suspect]
     Active Substance: PAZOPANIB HYDROCHLORIDE
     Indication: RENAL CANCER
     Dosage: 800MG/DAY
     Route: 048

REACTIONS (5)
  - Pyrexia [Unknown]
  - Rash [Unknown]
  - Metastases to bladder [Unknown]
  - Hepatic function abnormal [Unknown]
  - Diarrhoea [Unknown]
